FAERS Safety Report 12678493 (Version 1)
Quarter: 2016Q3

REPORT INFORMATION
  Report Type: Spontaneous
  Country: US (occurrence: US)
  Receive Date: 20160823
  Receipt Date: 20160823
  Transmission Date: 20161109
  Serious: Yes (Hospitalization)
  Sender: FDA-Public Use
  Company Number: US-PRESTIUM-2015RN000206

PATIENT
  Age: 17 Year
  Sex: Female

DRUGS (1)
  1. LITHIUM CARBONATE. [Suspect]
     Active Substance: LITHIUM CARBONATE
     Indication: BIPOLAR DISORDER
     Route: 065

REACTIONS (12)
  - Drug abuse [Unknown]
  - Toxicity to various agents [Unknown]
  - Intentional overdose [Unknown]
  - Nausea [Unknown]
  - Vomiting [Unknown]
  - Mucosal dryness [Unknown]
  - Ataxia [Unknown]
  - Tachycardia [Unknown]
  - Tremor [Unknown]
  - Abdominal pain [Unknown]
  - Chapped lips [Unknown]
  - Hyperreflexia [Unknown]
